FAERS Safety Report 5852071-3 (Version None)
Quarter: 2008Q3

REPORT INFORMATION
  Report Type: 
  Country: None (occurrence: None)
  Receive Date: 20080821
  Receipt Date: 20080814
  Transmission Date: 20090109
  Serious: Yes (Other)
  Sender: FDA-Public Use
  Company Number: CH-CELGENEUS-151-21880-08070834

PATIENT
  Age: 67 Year
  Sex: Female

DRUGS (2)
  1. REVLIMID [Suspect]
     Indication: 5Q MINUS SYNDROME
     Route: 048
     Dates: start: 20060515, end: 20061001
  2. IRBESARTAN [Concomitant]
     Indication: HYPERTENSION
     Route: 065
     Dates: start: 20060622

REACTIONS (2)
  - NEUTROPENIA [None]
  - POLYCYTHAEMIA [None]
